FAERS Safety Report 16546238 (Version 2)
Quarter: 2019Q3

REPORT INFORMATION
  Report Type: Spontaneous
  Country: ES (occurrence: ES)
  Receive Date: 20190709
  Receipt Date: 20190714
  Transmission Date: 20191004
  Serious: Yes (Death)
  Sender: FDA-Public Use
  Company Number: ES-ACTELION-A-CH2019-192695

PATIENT
  Sex: Female

DRUGS (1)
  1. UPTRAVI [Suspect]
     Active Substance: SELEXIPAG
     Indication: PULMONARY ARTERIAL HYPERTENSION
     Dosage: 1200 MCG
     Route: 048

REACTIONS (4)
  - Malaise [Unknown]
  - Asthenia [Fatal]
  - Diarrhoea [Fatal]
  - Incorrect product formulation administered [Unknown]
